FAERS Safety Report 12228114 (Version 1)
Quarter: 2016Q1

REPORT INFORMATION
  Report Type: Spontaneous
  Country: US (occurrence: None)
  Receive Date: 20160330
  Receipt Date: 20160330
  Transmission Date: 20160526
  Serious: Yes (Hospitalization)
  Sender: FDA-Public Use
  Company Number: None

PATIENT
  Age: 51 Year
  Sex: Female
  Weight: 83.3 kg

DRUGS (3)
  1. METHYLPREDNISOLONE. [Suspect]
     Active Substance: METHYLPREDNISOLONE
     Indication: SPINAL OSTEOARTHRITIS
     Route: 048
     Dates: start: 20160317, end: 20160318
  2. METHYLPREDNISOLONE. [Suspect]
     Active Substance: METHYLPREDNISOLONE
     Indication: NECK PAIN
     Route: 048
     Dates: start: 20160317, end: 20160318
  3. METHYLPREDNISOLONE. [Suspect]
     Active Substance: METHYLPREDNISOLONE
     Indication: MUSCLE STRAIN
     Route: 048
     Dates: start: 20160317, end: 20160318

REACTIONS (2)
  - Delirium [None]
  - Psychotic disorder [None]

NARRATIVE: CASE EVENT DATE: 20160321
